FAERS Safety Report 17179222 (Version 1)
Quarter: 2019Q4

REPORT INFORMATION
  Report Type: Spontaneous
  Country: CZ (occurrence: CZ)
  Receive Date: 20191219
  Receipt Date: 20191219
  Transmission Date: 20200122
  Serious: Yes (Life-Threatening)
  Sender: FDA-Public Use
  Company Number: CZ-MYLANLABS-2019M1125520

PATIENT
  Age: 73 Year
  Sex: Female

DRUGS (3)
  1. AMISULPRIDE [Suspect]
     Active Substance: AMISULPRIDE
     Indication: MENTAL DISORDER
     Dosage: UNK, QD (200 TO 400 MG)
     Route: 048
  2. MIRTAZAPINE. [Suspect]
     Active Substance: MIRTAZAPINE
     Indication: MENTAL DISORDER
     Dosage: 45 MILLIGRAM, QD
     Route: 048
  3. VENLAFAXINE [Suspect]
     Active Substance: VENLAFAXINE HYDROCHLORIDE
     Indication: MENTAL DISORDER
     Dosage: 225 MILLIGRAM, QD
     Route: 048

REACTIONS (1)
  - Neuroleptic malignant syndrome [Not Recovered/Not Resolved]
